FAERS Safety Report 22116479 (Version 1)
Quarter: 2023Q1

REPORT INFORMATION
  Report Type: Spontaneous
  Country: AR (occurrence: AR)
  Receive Date: 20230320
  Receipt Date: 20230320
  Transmission Date: 20230418
  Serious: Yes (Other)
  Sender: FDA-Public Use
  Company Number: AR-PFIZER INC-202300116725

PATIENT
  Age: 80 Year
  Sex: Female

DRUGS (2)
  1. LORAZEPAM [Suspect]
     Active Substance: LORAZEPAM
     Indication: Stress
     Dosage: 1 MG, 1X/DAY
     Dates: start: 1993
  2. LORAZEPAM [Suspect]
     Active Substance: LORAZEPAM
     Dosage: 2 MG, DAILY

REACTIONS (7)
  - Parkinson^s disease [Unknown]
  - Glaucoma [Unknown]
  - Musculoskeletal stiffness [Unknown]
  - Depression [Unknown]
  - Off label use [Unknown]
  - Product use issue [Unknown]
  - Intentional product use issue [Unknown]

NARRATIVE: CASE EVENT DATE: 19930101
